FAERS Safety Report 4469922-X (Version None)
Quarter: 2004Q4

REPORT INFORMATION
  Report Type: 
  Country: None (occurrence: None)
  Receive Date: 20041008
  Receipt Date: 20040929
  Transmission Date: 20050328
  Serious: Yes (Hospitalization)
  Sender: FDA-Public Use
  Company Number: PHEH2004US10515

PATIENT
  Sex: Male

DRUGS (2)
  1. ZOMETA [Suspect]
     Indication: PROSTATE CANCER METASTATIC
     Dosage: 4 MG EVERY 30 DAYS
     Route: 042
  2. LUPRON [Concomitant]
     Dosage: 7.5 MG, UNK

REACTIONS (2)
  - PYREXIA [None]
  - SEPSIS [None]
